FAERS Safety Report 9126515 (Version 4)
Quarter: 2015Q1

REPORT INFORMATION
  Report Type: Spontaneous
  Country: US (occurrence: US)
  Receive Date: 20130228
  Receipt Date: 20150302
  Transmission Date: 20150721
  Serious: Yes (Disabling, Other)
  Sender: FDA-Public Use
  Company Number: US-009507513-1302USA012494

PATIENT
  Sex: Male
  Weight: 93.42 kg

DRUGS (1)
  1. PROPECIA [Suspect]
     Active Substance: FINASTERIDE
     Indication: ALOPECIA
     Dosage: 1 MG, UNK
     Route: 048
     Dates: start: 2009, end: 20120109

REACTIONS (31)
  - Penile size reduced [Not Recovered/Not Resolved]
  - Testicular disorder [Unknown]
  - Salmonellosis [Recovering/Resolving]
  - Cardiac murmur [Unknown]
  - Peripheral venous disease [Unknown]
  - Hypogonadism [Unknown]
  - Frustration [Unknown]
  - Cognitive disorder [Not Recovered/Not Resolved]
  - Sexual dysfunction [Not Recovered/Not Resolved]
  - Hypercholesterolaemia [Unknown]
  - Bone disorder [Unknown]
  - Libido decreased [Unknown]
  - Reproductive tract disorder [Unknown]
  - Erectile dysfunction [Not Recovered/Not Resolved]
  - Ejaculation disorder [Unknown]
  - Aggression [Unknown]
  - Testicular failure [Unknown]
  - Anger [Unknown]
  - Loss of consciousness [Unknown]
  - Ejaculation failure [Unknown]
  - Hypertension [Unknown]
  - Goitre [Unknown]
  - Drug hypersensitivity [Unknown]
  - Anxiety [Not Recovered/Not Resolved]
  - Loss of libido [Not Recovered/Not Resolved]
  - Depression [Not Recovered/Not Resolved]
  - Obsessive-compulsive disorder [Unknown]
  - Chondropathy [Unknown]
  - Drug ineffective [Unknown]
  - Vitamin D deficiency [Unknown]
  - Grief reaction [Unknown]

NARRATIVE: CASE EVENT DATE: 201112
